FAERS Safety Report 14547913 (Version 1)
Quarter: 2018Q1

REPORT INFORMATION
  Report Type: Spontaneous
  Country: US (occurrence: US)
  Receive Date: 20180219
  Receipt Date: 20180219
  Transmission Date: 20180509
  Serious: Yes (Hospitalization, Other)
  Sender: FDA-Public Use
  Company Number: US-GLAXOSMITHKLINE-US2018026262

PATIENT
  Age: 70 Year
  Sex: Female

DRUGS (1)
  1. SORIATANE [Suspect]
     Active Substance: ACITRETIN
     Indication: KERATOSIS FOLLICULAR
     Dosage: 50 MG, QD
     Route: 048
     Dates: start: 1998

REACTIONS (2)
  - Malaise [Recovering/Resolving]
  - Appendicectomy [Recovered/Resolved]

NARRATIVE: CASE EVENT DATE: 201801
